FAERS Safety Report 16184741 (Version 15)
Quarter: 2021Q4

REPORT INFORMATION
  Report Type: Spontaneous
  Country: US (occurrence: US)
  Receive Date: 20190411
  Receipt Date: 20211014
  Transmission Date: 20220303
  Serious: No
  Sender: FDA-Public Use
  Company Number: US-PFIZER INC-2019151015

PATIENT
  Age: 57 Year
  Sex: Female
  Weight: 98.43 kg

DRUGS (7)
  1. XELJANZ [Suspect]
     Active Substance: TOFACITINIB CITRATE
     Indication: Hydronephrosis
     Dosage: 10 MG, 2X/DAY (5MG, 2 TABLETS TWICE DAILY)
     Route: 048
     Dates: start: 2018
  2. XELJANZ [Suspect]
     Active Substance: TOFACITINIB CITRATE
     Indication: Uveitis
     Dosage: 5MG 4X/DAY (TWO 5MG TABLETS IN THE MORNING AND TWO 5MG TABLETS IN THE EVENING)
     Route: 048
  3. XELJANZ [Suspect]
     Active Substance: TOFACITINIB CITRATE
     Indication: Iridocyclitis
     Dosage: 10 MG
  4. XELJANZ [Suspect]
     Active Substance: TOFACITINIB CITRATE
     Indication: Inflammatory bowel disease
     Dosage: 10 MG, 2X/DAY (TWO IN THE MORNING AND TWO IN THE EVENING))
  5. XELJANZ [Suspect]
     Active Substance: TOFACITINIB CITRATE
     Indication: Crohn^s disease
  6. XELJANZ [Suspect]
     Active Substance: TOFACITINIB CITRATE
     Indication: Colitis ulcerative
  7. XELJANZ [Suspect]
     Active Substance: TOFACITINIB CITRATE
     Indication: Arthritis

REACTIONS (2)
  - Illness [Unknown]
  - Eye inflammation [Unknown]

NARRATIVE: CASE EVENT DATE: 20190101
